FAERS Safety Report 5523708-3 (Version None)
Quarter: 2007Q4

REPORT INFORMATION
  Report Type: 
  Country: None (occurrence: None)
  Receive Date: 20071121
  Receipt Date: 20071113
  Transmission Date: 20080405
  Serious: Yes (Hospitalization)
  Sender: FDA-Public Use
  Company Number: US-JNJFOC-20071105433

PATIENT
  Sex: Female
  Weight: 84.82 kg

DRUGS (4)
  1. DURAGESIC-100 [Suspect]
     Indication: PAIN
     Route: 062
  2. NEXIUM [Concomitant]
     Indication: GASTRIC DISORDER
     Route: 048
  3. ZYDONE [Concomitant]
     Indication: PAIN MANAGEMENT
     Dosage: 1 EVERY 3 TO 4 HOURS
     Route: 048
  4. ZYRTEC [Concomitant]
     Indication: SINUS DISORDER
     Route: 048

REACTIONS (3)
  - ANKLE FRACTURE [None]
  - BLOOD CHOLESTEROL INCREASED [None]
  - THERAPEUTIC RESPONSE DECREASED [None]
